FAERS Safety Report 20990464 (Version 3)
Quarter: 2022Q3

REPORT INFORMATION
  Report Type: Report from Study
  Country: HU (occurrence: HU)
  Receive Date: 20220622
  Receipt Date: 20220722
  Transmission Date: 20221027
  Serious: Yes (Death, Hospitalization)
  Sender: FDA-Public Use
  Company Number: HU-NOVARTISPH-NVSC2022HU142433

PATIENT
  Sex: Male
  Weight: 70 kg

DRUGS (9)
  1. ENTRESTO [Suspect]
     Active Substance: SACUBITRIL\VALSARTAN
     Indication: N-terminal prohormone brain natriuretic peptide increased
     Dosage: UNK
     Route: 065
  2. ENTRESTO [Suspect]
     Active Substance: SACUBITRIL\VALSARTAN
     Indication: Congestive cardiomyopathy
     Dosage: 100 MG, BID (49 MG OF SACUBITRIL AND 51 MG OF VALSARTAN)
     Route: 065
     Dates: start: 202203
  3. ENTRESTO [Suspect]
     Active Substance: SACUBITRIL\VALSARTAN
     Indication: Ejection fraction
     Dosage: 100 MG (49/51 MG) TWICE
     Route: 048
     Dates: start: 20220311, end: 20220403
  4. ENTRESTO [Suspect]
     Active Substance: SACUBITRIL\VALSARTAN
     Indication: Cardiac failure
  5. ENTRESTO [Suspect]
     Active Substance: SACUBITRIL\VALSARTAN
     Indication: Cardiac failure
  6. CORDARONE [Concomitant]
     Active Substance: AMIODARONE HYDROCHLORIDE
     Indication: Ventricular tachycardia
     Dosage: 200 MG, ONCE/SINGLE
     Route: 048
     Dates: start: 202006, end: 20220403
  7. FUROSEMIDE [Concomitant]
     Active Substance: FUROSEMIDE
     Indication: Cardiac failure
     Dosage: 40 MG (3X)
     Route: 048
     Dates: start: 202006, end: 20220413
  8. EPLERENONE [Concomitant]
     Active Substance: EPLERENONE
     Indication: Cardiac failure
     Dosage: 25 MG
     Route: 048
     Dates: start: 202006, end: 20220403
  9. DABIGATRAN [Concomitant]
     Active Substance: DABIGATRAN
     Indication: Atrial fibrillation
     Dosage: 110 MG (2X)
     Route: 048
     Dates: start: 202006, end: 20220403

REACTIONS (5)
  - Respiratory arrest [Fatal]
  - SARS-CoV-2 test positive [Recovering/Resolving]
  - Fall [Unknown]
  - Confusional state [Unknown]
  - Asthenia [Recovering/Resolving]

NARRATIVE: CASE EVENT DATE: 20220101
